FAERS Safety Report 16915566 (Version 1)
Quarter: 2019Q4

REPORT INFORMATION
  Report Type: Spontaneous
  Country: US (occurrence: US)
  Receive Date: 20190821
  Receipt Date: 20190821
  Transmission Date: 20200122
  Serious: No
  Sender: FDA-Public Use
  Company Number: None

PATIENT
  Age: 55 Year
  Sex: Male

DRUGS (1)
  1. ABATACEPT [Suspect]
     Active Substance: ABATACEPT
     Route: 058
     Dates: start: 20170123, end: 20190611

REACTIONS (1)
  - Aphthous ulcer [None]

NARRATIVE: CASE EVENT DATE: 20190611
